FAERS Safety Report 19907966 (Version 1)
Quarter: 2021Q3

REPORT INFORMATION
  Report Type: Spontaneous
  Country: CN (occurrence: CN)
  Receive Date: 20210930
  Receipt Date: 20210930
  Transmission Date: 20211014
  Serious: Yes (Other)
  Sender: FDA-Public Use
  Company Number: CN-JIANGSU HENGRUI MEDICINE CO., LTD.-2119030

PATIENT
  Age: 79 Year
  Sex: Male
  Weight: 70 kg

DRUGS (3)
  1. PAPAVERINE HYDROCHLORIDE. [Suspect]
     Active Substance: PAPAVERINE HYDROCHLORIDE
     Route: 041
     Dates: start: 20210901, end: 20210905
  2. FONDAPARINUX SODIUM. [Suspect]
     Active Substance: FONDAPARINUX SODIUM
     Indication: THROMBOSIS PROPHYLAXIS
     Dates: start: 20210901, end: 20210905
  3. MANNITOL. [Suspect]
     Active Substance: MANNITOL
     Route: 041
     Dates: start: 20210901, end: 20210905

REACTIONS (3)
  - Atrial fibrillation [Recovered/Resolved]
  - Tachyarrhythmia [Recovered/Resolved]
  - Electrocardiogram ST segment abnormal [Recovered/Resolved]

NARRATIVE: CASE EVENT DATE: 20210904
